FAERS Safety Report 4417150-6 (Version None)
Quarter: 2004Q3

REPORT INFORMATION
  Report Type: 
  Country: None (occurrence: None)
  Receive Date: 20040806
  Receipt Date: 20030929
  Transmission Date: 20050211
  Serious: Yes (Hospitalization, Disabling)
  Sender: FDA-Public Use
  Company Number: US-MERCK-0310USA00440

PATIENT
  Age: 45 Year
  Sex: Female
  Weight: 67 kg

DRUGS (2)
  1. VIOXX [Suspect]
     Indication: OSTEOARTHRITIS
     Route: 048
  2. VIOXX [Suspect]
     Indication: ARTHRITIS
     Route: 048

REACTIONS (5)
  - ABDOMINAL DISCOMFORT [None]
  - ADVERSE EVENT [None]
  - ALOPECIA [None]
  - ARTHROPATHY [None]
  - KIDNEY INFECTION [None]
